FAERS Safety Report 17982248 (Version 1)
Quarter: 2020Q3

REPORT INFORMATION
  Report Type: Spontaneous
  Country: US (occurrence: US)
  Receive Date: 20200706
  Receipt Date: 20200706
  Transmission Date: 20201103
  Serious: Yes (Other)
  Sender: FDA-Public Use
  Company Number: US-MSNLABS-2020MSNSPO00131

PATIENT
  Sex: Female

DRUGS (1)
  1. CAPECITABINE TABLETS 500 MG [Suspect]
     Active Substance: CAPECITABINE
     Indication: BREAST CANCER FEMALE
     Route: 065

REACTIONS (1)
  - Drug ineffective [Unknown]
